FAERS Safety Report 21302122 (Version 1)
Quarter: 2022Q3

REPORT INFORMATION
  Report Type: Spontaneous
  Country: US (occurrence: None)
  Receive Date: 20220906
  Receipt Date: 20220906
  Transmission Date: 20221027
  Serious: Yes (Hospitalization)
  Sender: FDA-Public Use
  Company Number: None

PATIENT
  Age: 70 Year
  Sex: Female
  Weight: 54 kg

DRUGS (2)
  1. KEVZARA [Suspect]
     Active Substance: SARILUMAB
     Indication: Rheumatoid arthritis
     Dosage: FREQUENCY : EVERY OTHER WEEK;?
     Route: 058
     Dates: start: 20220201, end: 20220331
  2. ACTEMRA [Suspect]
     Active Substance: TOCILIZUMAB
     Indication: Rheumatoid arthritis
     Dates: start: 20211130, end: 20220128

REACTIONS (10)
  - Fatigue [None]
  - Headache [None]
  - Aphasia [None]
  - Pulmonary valve thickening [None]
  - Brain abscess [None]
  - Culture wound positive [None]
  - Streptococcus test positive [None]
  - Fusobacterium test positive [None]
  - Parvimonas test positive [None]
  - Migraine [None]

NARRATIVE: CASE EVENT DATE: 20220331
